FAERS Safety Report 24713407 (Version 1)
Quarter: 2024Q4

REPORT INFORMATION
  Report Type: Spontaneous
  Country: CA (occurrence: CA)
  Receive Date: 20241209
  Receipt Date: 20241209
  Transmission Date: 20250115
  Serious: Yes (Hospitalization)
  Sender: PFIZER
  Company Number: CA-PFIZER INC-202400316712

PATIENT
  Age: 57 Year
  Sex: Female
  Weight: 57 kg

DRUGS (11)
  1. CARBOPLATIN [Suspect]
     Active Substance: CARBOPLATIN
     Indication: Endometrial cancer
  2. CARBOPLATIN [Suspect]
     Active Substance: CARBOPLATIN
     Indication: Cervix carcinoma
  3. PACLITAXEL [Suspect]
     Active Substance: PACLITAXEL
     Indication: Endometrial cancer
  4. PACLITAXEL [Suspect]
     Active Substance: PACLITAXEL
     Indication: Cervix carcinoma
  5. DEXAMETHASONE [Concomitant]
     Active Substance: DEXAMETHASONE
     Route: 065
  6. DIMENHYDRINATE [Concomitant]
     Active Substance: DIMENHYDRINATE
  7. HUMALOG [Concomitant]
     Active Substance: INSULIN LISPRO
  8. INSULIN GLARGINE [Concomitant]
     Active Substance: INSULIN GLARGINE
  9. IRON SUCROSE [Concomitant]
     Active Substance: IRON SUCROSE
  10. PROCHLORPERAZINE [Concomitant]
     Active Substance: PROCHLORPERAZINE
  11. TRANEXAMIC ACID [Concomitant]
     Active Substance: TRANEXAMIC ACID

REACTIONS (2)
  - Febrile neutropenia [Recovered/Resolved]
  - Urinary tract disorder [Recovered/Resolved]
